FAERS Safety Report 10018171 (Version 1)
Quarter: 2014Q1

REPORT INFORMATION
  Report Type: Spontaneous
  Country: US (occurrence: US)
  Receive Date: 20140318
  Receipt Date: 20140318
  Transmission Date: 20141002
  Serious: Yes (Other)
  Sender: FDA-Public Use
  Company Number: US-BRISTOL-MYERS SQUIBB COMPANY-19096411

PATIENT
  Sex: 0

DRUGS (1)
  1. ERBITUX [Suspect]
     Indication: COLORECTAL CANCER

REACTIONS (5)
  - Bronchospasm [Unknown]
  - Hypertension [Unknown]
  - Flushing [Unknown]
  - Rash [Unknown]
  - Urticaria [Unknown]
